FAERS Safety Report 9707731 (Version 2)
Quarter: 2013Q4

REPORT INFORMATION
  Report Type: Report from Study
  Country: US (occurrence: US)
  Receive Date: 20131125
  Receipt Date: 20131125
  Transmission Date: 20140711
  Serious: Yes (Death, Hospitalization)
  Sender: FDA-Public Use
  Company Number: US-ELI_LILLY_AND_COMPANY-US201309004893

PATIENT
  Age: 76 Year
  Sex: Male
  Weight: 95 kg

DRUGS (14)
  1. NECITUMUMAB (11F8) (LY3012211) [Suspect]
     Indication: NEOPLASM MALIGNANT
     Dosage: 800 MG, CYCLICAL
     Route: 042
     Dates: start: 20130912
  2. GEMCITABINE HYDROCHLORIDE [Suspect]
     Indication: NEOPLASM MALIGNANT
     Dosage: 1250 MG/M2, CYCLICAL
     Route: 042
     Dates: start: 20130910
  3. CISPLATIN [Suspect]
     Indication: NEOPLASM MALIGNANT
     Dosage: 75 MG/M2, CYCLICAL
     Route: 042
     Dates: start: 20130910
  4. ATORVASTATIN [Concomitant]
     Indication: HYPERCHOLESTEROLAEMIA
     Dosage: UNK
     Dates: start: 200901
  5. GLYBURIDE [Concomitant]
     Indication: DIABETES MELLITUS
     Dosage: UNK
     Dates: start: 200207
  6. LOSARTAN [Concomitant]
     Indication: HYPERTENSION
     Dosage: UNK
     Dates: start: 200901, end: 20130914
  7. METFORMIN [Concomitant]
     Indication: DIABETES MELLITUS
     Dosage: UNK
     Dates: start: 200502, end: 20130914
  8. MORPHINE SULFATE [Concomitant]
     Indication: PAIN
     Dosage: UNK
     Dates: start: 201305
  9. OMEPRAZOLE [Concomitant]
     Indication: GASTROOESOPHAGEAL REFLUX DISEASE
     Dosage: UNK
     Dates: start: 20121126
  10. VITAMIN B12 [Concomitant]
     Indication: VITAMIN SUPPLEMENTATION
     Dosage: UNK
     Dates: start: 201306
  11. SENNA-S                            /01035001/ [Concomitant]
     Indication: CONSTIPATION
     Dosage: UNK
     Dates: start: 20130910
  12. RIVAROXABAN [Concomitant]
     Indication: THROMBOSIS PROPHYLAXIS
     Dosage: UNK
     Dates: start: 200801
  13. ONDANSETRON [Concomitant]
     Indication: NAUSEA
     Dosage: UNK
     Dates: start: 201209
  14. DEXAMETHASONE [Concomitant]
     Indication: SPINAL CORD COMPRESSION
     Dosage: UNK
     Dates: start: 20130708

REACTIONS (2)
  - Renal failure acute [Fatal]
  - Asthenia [Not Recovered/Not Resolved]
